FAERS Safety Report 5670893-9 (Version None)
Quarter: 2008Q1

REPORT INFORMATION
  Report Type: 
  Country: None (occurrence: None)
  Receive Date: 20080318
  Receipt Date: 20080312
  Transmission Date: 20080703
  Serious: Yes (Other)
  Sender: FDA-Public Use
  Company Number: A0714973A

PATIENT
  Age: 19 Year
  Sex: Female

DRUGS (2)
  1. LAMICTAL [Suspect]
     Indication: BIPOLAR DISORDER
     Dosage: 200MG TWICE PER DAY
     Route: 048
     Dates: start: 20060801, end: 20070801
  2. XANAX [Concomitant]

REACTIONS (5)
  - BORDERLINE GLAUCOMA [None]
  - DYSLEXIA [None]
  - DYSPHEMIA [None]
  - MEMORY IMPAIRMENT [None]
  - PHOTOPSIA [None]
